FAERS Safety Report 10865665 (Version 2)
Quarter: 2015Q1

REPORT INFORMATION
  Report Type: Spontaneous
  Country: US (occurrence: US)
  Receive Date: 20150224
  Receipt Date: 20150326
  Transmission Date: 20150721
  Serious: Yes (Hospitalization, Other)
  Sender: FDA-Public Use
  Company Number: US-BAYER-2015-026660

PATIENT
  Age: 34 Year
  Sex: Female
  Weight: 104.31 kg

DRUGS (10)
  1. FLONASE [Concomitant]
     Active Substance: FLUTICASONE PROPIONATE
     Dosage: 50 ?G, 2 SPRAY QD
     Dates: start: 201009
  2. PERCOCET [Concomitant]
     Active Substance: ACETAMINOPHEN\OXYCODONE HYDROCHLORIDE
     Indication: PAIN
     Dosage: UNK
     Dates: start: 2008
  3. PREVACID [Concomitant]
     Active Substance: LANSOPRAZOLE
     Dosage: 30 MG, QD
     Dates: start: 201009
  4. ALLEGRA [Concomitant]
     Active Substance: FEXOFENADINE HYDROCHLORIDE
     Dosage: 60 MG, BID
     Dates: start: 201009
  5. ZITHROMAX [Concomitant]
     Active Substance: AZITHROMYCIN DIHYDRATE
     Dosage: 500 MG, STAT
     Dates: start: 201009
  6. SULFACETAMIDE [Concomitant]
     Active Substance: SULFACETAMIDE
     Dosage: 40 CC TWICE DAILY
     Dates: start: 201009
  7. BACTRIM DS [Concomitant]
     Active Substance: SULFAMETHOXAZOLE\TRIMETHOPRIM
     Dosage: 800 MG, BID 7 DAYS
     Dates: start: 201009
  8. MIRENA [Suspect]
     Active Substance: LEVONORGESTREL
     Indication: CONTRACEPTION
     Dosage: 20 MCG/24HR, CONT
     Route: 015
     Dates: start: 20080118, end: 20101015
  9. CLARITIN-D 12 HOUR [Concomitant]
     Active Substance: LORATADINE\PSEUDOEPHEDRINE SULFATE
     Dosage: 10 MG, QD
     Dates: start: 201009
  10. LORATADIN [Concomitant]
     Active Substance: LORATADINE
     Indication: SINUSITIS
     Dosage: UNK
     Dates: start: 2008

REACTIONS (7)
  - Embedded device [None]
  - Pain [None]
  - Device difficult to use [None]
  - Injury [None]
  - Intra-uterine contraceptive device removal [None]
  - Pelvic inflammatory disease [None]
  - Device issue [None]

NARRATIVE: CASE EVENT DATE: 200802
